FAERS Safety Report 7756335-8 (Version None)
Quarter: 2011Q3

REPORT INFORMATION
  Report Type: 
  Country: None (occurrence: None)
  Receive Date: 20110916
  Receipt Date: 20110907
  Transmission Date: 20111222
  Serious: Yes (Other)
  Sender: FDA-Public Use
  Company Number: DE-ROCHE-802219

PATIENT
  Sex: Male

DRUGS (2)
  1. COPEGUS [Suspect]
     Route: 065
     Dates: start: 20080101, end: 20080101
  2. PEGASYS [Suspect]
     Route: 065
     Dates: start: 20080101, end: 20080101

REACTIONS (1)
  - FACIAL PARESIS [None]
